FAERS Safety Report 18273418 (Version 1)
Quarter: 2020Q3

REPORT INFORMATION
  Report Type: Spontaneous
  Country: SI (occurrence: SI)
  Receive Date: 20200916
  Receipt Date: 20200916
  Transmission Date: 20201103
  Serious: Yes (Death, Hospitalization, Other)
  Sender: FDA-Public Use
  Company Number: SI-BAYER-2020-190301

PATIENT
  Age: 62 Year
  Sex: Female

DRUGS (2)
  1. STIVARGA [Suspect]
     Active Substance: REGORAFENIB
     Indication: HEPATOCELLULAR CARCINOMA
     Dosage: 160 MG DAILY
     Dates: start: 201903, end: 201910
  2. STIVARGA [Suspect]
     Active Substance: REGORAFENIB
     Indication: HEPATOCELLULAR CARCINOMA
     Dosage: 120 MG DAILY
     Route: 048
     Dates: start: 201902

REACTIONS (5)
  - Pneumonia [None]
  - Metastases to lung [None]
  - Diarrhoea [None]
  - Ascites [None]
  - Hepatic encephalopathy [Fatal]

NARRATIVE: CASE EVENT DATE: 201904
